FAERS Safety Report 20493880 (Version 1)
Quarter: 2022Q1

REPORT INFORMATION
  Report Type: Spontaneous
  Country: US (occurrence: US)
  Receive Date: 20220221
  Receipt Date: 20220221
  Transmission Date: 20220423
  Serious: Yes (Death, Life-Threatening, Other)
  Sender: FDA-Public Use
  Company Number: US-AMGEN-USASP2022027838

PATIENT

DRUGS (5)
  1. PEGFILGRASTIM [Suspect]
     Active Substance: PEGFILGRASTIM
     Indication: Prophylaxis
     Route: 065
  2. DOCETAXEL [Concomitant]
     Active Substance: DOCETAXEL
     Indication: Oesophageal carcinoma
     Dosage: 40 MILLIGRAM/SQ. METER (DAY 1)
     Route: 042
  3. CISPLATIN [Concomitant]
     Active Substance: CISPLATIN
     Indication: Oesophageal carcinoma
     Dosage: 40 MILLIGRAM/SQ. METER (DAY 1)
     Route: 042
  4. FLUOROURACIL [Concomitant]
     Active Substance: FLUOROURACIL
     Indication: Oesophageal carcinoma
     Dosage: 400 MILLIGRAM/SQ. METER (DAY 1), 1000 MILLIGRAM/SQ. METER OVER 48 HOURS (DAYS 1 AND 2)
     Route: 042
  5. LEUCOVORIN [Concomitant]
     Active Substance: LEUCOVORIN
     Indication: Oesophageal carcinoma
     Dosage: 400 MILLIGRAM/SQ. METER (DAY 1)

REACTIONS (11)
  - Oesophageal carcinoma recurrent [Fatal]
  - Death [Fatal]
  - Dehydration [Fatal]
  - Cardiac disorder [Fatal]
  - Leukopenia [Unknown]
  - Neutropenia [Unknown]
  - Anaemia [Unknown]
  - Thrombocytopenia [Unknown]
  - Inflammatory bowel disease [Unknown]
  - Asthenia [Unknown]
  - Hypotension [Unknown]
